FAERS Safety Report 20609709 (Version 1)
Quarter: 2022Q1

REPORT INFORMATION
  Report Type: Spontaneous
  Country: FR (occurrence: FR)
  Receive Date: 20220318
  Receipt Date: 20220318
  Transmission Date: 20220423
  Serious: Yes (Life-Threatening)
  Sender: FDA-Public Use
  Company Number: None

PATIENT
  Age: 51 Year
  Sex: Female
  Weight: 62 kg

DRUGS (7)
  1. REPAGLINIDE [Suspect]
     Active Substance: REPAGLINIDE
     Indication: Type 2 diabetes mellitus
     Dosage: 4MG
     Route: 048
     Dates: start: 2019, end: 20211125
  2. METFORMIN [Suspect]
     Active Substance: METFORMIN HYDROCHLORIDE
     Indication: Type 2 diabetes mellitus
     Dosage: 3GM
     Route: 048
     Dates: start: 2018, end: 20211125
  3. TRULICITY [Concomitant]
     Active Substance: DULAGLUTIDE
  4. ABILIFY [Concomitant]
     Active Substance: ARIPIPRAZOLE
  5. CYAMEMAZINE [Concomitant]
     Active Substance: CYAMEMAZINE
  6. OXAZEPAM [Concomitant]
     Active Substance: OXAZEPAM
  7. LORMETAZEPAM [Concomitant]
     Active Substance: LORMETAZEPAM

REACTIONS (2)
  - Vomiting [Recovered/Resolved]
  - Diarrhoea [Recovered/Resolved]

NARRATIVE: CASE EVENT DATE: 20211122
